FAERS Safety Report 4495456-2 (Version None)
Quarter: 2004Q4

REPORT INFORMATION
  Report Type: 
  Country: None (occurrence: None)
  Receive Date: 20041108
  Receipt Date: 20041102
  Transmission Date: 20050328
  Serious: Yes (Death, Hospitalization)
  Sender: FDA-Public Use
  Company Number: 200414140FR

PATIENT
  Age: 72 Year
  Sex: Male

DRUGS (6)
  1. FLAGYL [Suspect]
     Route: 042
     Dates: start: 20031204, end: 20031213
  2. DI-HYDAN [Suspect]
     Route: 048
     Dates: start: 20031109, end: 20031113
  3. VANCOMYCIN [Suspect]
     Route: 042
     Dates: start: 20031206, end: 20031213
  4. TIENAM [Suspect]
     Route: 042
     Dates: start: 20031204, end: 20031213
  5. PRODILANTIN [Suspect]
     Route: 048
     Dates: start: 20031203, end: 20031209
  6. PERFALGAN [Suspect]
     Route: 042
     Dates: start: 20031107, end: 20031213

REACTIONS (5)
  - DUODENAL ULCER PERFORATION [None]
  - PERITONITIS [None]
  - SEPTIC SHOCK [None]
  - STEVENS-JOHNSON SYNDROME [None]
  - TOXIC EPIDERMAL NECROLYSIS [None]
